FAERS Safety Report 9255745 (Version 1)
Quarter: 2013Q2

REPORT INFORMATION
  Report Type: Report from Study
  Country: BR (occurrence: BR)
  Receive Date: 20130425
  Receipt Date: 20130425
  Transmission Date: 20140414
  Serious: Yes (Other)
  Sender: FDA-Public Use
  Company Number: PHHY2013BR040902

PATIENT
  Sex: Female
  Weight: 39 kg

DRUGS (4)
  1. ACLASTA [Suspect]
     Indication: OSTEOPOROSIS
     Dosage: 5 MG, UNK
     Route: 042
  2. RIVOTRIL [Concomitant]
     Indication: DEPRESSION
     Dosage: 1 DF, QD (AT NIGHT)
     Route: 048
  3. AMITRIPTYLINE HYDROCHLORIDE [Concomitant]
     Indication: DEPRESSION
     Dosage: 1 DF, QD (AT NIGHT)
     Route: 048
  4. RISPERIDONE [Concomitant]
     Indication: DEPRESSION
     Dosage: 1 DF, QD (AT NIGHT)
     Route: 048

REACTIONS (2)
  - Mental disorder [Not Recovered/Not Resolved]
  - Abnormal behaviour [Unknown]
